FAERS Safety Report 13917951 (Version 1)
Quarter: 2017Q3

REPORT INFORMATION
  Report Type: Spontaneous
  Country: US (occurrence: US)
  Receive Date: 20170829
  Receipt Date: 20170829
  Transmission Date: 20171127
  Serious: No
  Sender: FDA-Public Use
  Company Number: US-SA-2016SA167462

PATIENT
  Age: 40 Year
  Sex: Female
  Weight: 72.57 kg

DRUGS (15)
  1. FABRAZYME [Suspect]
     Active Substance: AGALSIDASE BETA
     Indication: FABRY^S DISEASE
     Route: 041
     Dates: start: 20151103, end: 20160831
  2. EPIPEN [Concomitant]
     Active Substance: EPINEPHRINE
     Route: 030
     Dates: start: 20151105
  3. FABRAZYME [Suspect]
     Active Substance: AGALSIDASE BETA
     Indication: FABRY^S DISEASE
     Route: 041
     Dates: start: 20151103, end: 20160831
  4. FABRAZYME [Suspect]
     Active Substance: AGALSIDASE BETA
     Indication: FABRY^S DISEASE
     Route: 041
  5. METHYLTESTOSTERONE/ESTRADIOL [Concomitant]
     Dosage: AS DIRECTED
     Route: 048
     Dates: start: 20151103
  6. JUNEL [Concomitant]
     Active Substance: ETHINYL ESTRADIOL\NORETHINDRONE ACETATE
     Route: 048
     Dates: start: 20151119
  7. CARBAMAZEPINE. [Concomitant]
     Active Substance: CARBAMAZEPINE
     Route: 048
     Dates: start: 20151119
  8. ACETAMINOPHEN. [Concomitant]
     Active Substance: ACETAMINOPHEN
     Route: 048
     Dates: start: 20151105
  9. DEXAMETHASONE. [Concomitant]
     Active Substance: DEXAMETHASONE
     Dosage: DOSE:10 MILLIGRAM(S)/MILLILITRE
     Route: 042
     Dates: start: 20151105
  10. CLONAZEPAM. [Concomitant]
     Active Substance: CLONAZEPAM
     Dosage: AS DIRECTED
     Route: 048
     Dates: start: 20151105
  11. GABAPENTIN. [Concomitant]
     Active Substance: GABAPENTIN
     Route: 048
     Dates: start: 20151103
  12. AMOXICILLIN. [Concomitant]
     Active Substance: AMOXICILLIN
     Route: 048
     Dates: start: 20160127
  13. NORMAL SALINE [Concomitant]
     Active Substance: SODIUM CHLORIDE
     Route: 042
     Dates: start: 20151105
  14. AMITRIPTYLINE [Concomitant]
     Active Substance: AMITRIPTYLINE
     Route: 048
     Dates: start: 20151103
  15. SOLU-CORTEF [Concomitant]
     Active Substance: HYDROCORTISONE SODIUM SUCCINATE
     Route: 042
     Dates: start: 20151105

REACTIONS (1)
  - Urticaria [Unknown]

NARRATIVE: CASE EVENT DATE: 20160831
